FAERS Safety Report 22359532 (Version 1)
Quarter: 2023Q2

REPORT INFORMATION
  Report Type: Spontaneous
  Country: US (occurrence: None)
  Receive Date: 20230523
  Receipt Date: 20230523
  Transmission Date: 20230722
  Serious: No
  Sender: FDA-Public Use
  Company Number: None

PATIENT
  Age: 81 Year
  Sex: Male

DRUGS (24)
  1. ABIRATERONE [Suspect]
     Active Substance: ABIRATERONE
     Indication: Prostate cancer
     Dosage: OTHER QUANTITY : 4T;?FREQUENCY : DAILY;?
     Route: 048
  2. HIPREX [Concomitant]
     Active Substance: METHENAMINE HIPPURATE
  3. CALCIUM SOFT CHEWS [Concomitant]
  4. PROBIOTICS NOS [Concomitant]
     Active Substance: PROBIOTICS NOS
  5. OXYBUTYNIN [Concomitant]
     Active Substance: OXYBUTYNIN
  6. BACITRACIN [Concomitant]
     Active Substance: BACITRACIN
  7. PREDNISONE [Concomitant]
     Active Substance: PREDNISONE
  8. DULOXETINE [Concomitant]
     Active Substance: DULOXETINE
  9. ONDANSETRON [Concomitant]
     Active Substance: ONDANSETRON
  10. TYLENOL EXTRA STRENGTH [Concomitant]
     Active Substance: ACETAMINOPHEN
  11. AMMONIUM LACTATE [Concomitant]
     Active Substance: AMMONIUM LACTATE
  12. AMOXICILLIN [Concomitant]
     Active Substance: AMOXICILLIN
  13. VITAMIN C [Concomitant]
     Active Substance: ASCORBIC ACID
  14. DICLOFENAC [Concomitant]
     Active Substance: DICLOFENAC
  15. HYDROXYCHLOROQUINE [Concomitant]
     Active Substance: HYDROXYCHLOROQUINE
  16. LIDOCAINE PATCH [Concomitant]
     Active Substance: LIDOCAINE
  17. OMEPRAZOLE [Concomitant]
     Active Substance: OMEPRAZOLE
  18. HYDROCORT-PRAMOXINE [Concomitant]
  19. ELIQUIS [Concomitant]
     Active Substance: APIXABAN
  20. PROPRANOLOL [Concomitant]
     Active Substance: PROPRANOLOL HYDROCHLORIDE
  21. SIMVASTATIN [Concomitant]
     Active Substance: SIMVASTATIN
  22. VITAMIN B [Concomitant]
     Active Substance: VITAMIN B
  23. SM VITAMIN D3 [Concomitant]
  24. GENTAMICIN SULFATE INJECTION SOLUTION [Concomitant]

REACTIONS (1)
  - Cystitis [None]

NARRATIVE: CASE EVENT DATE: 20230515
